FAERS Safety Report 6135669-7 (Version None)
Quarter: 2009Q1

REPORT INFORMATION
  Report Type: 
  Country: None (occurrence: None)
  Receive Date: 20090327
  Receipt Date: 20090317
  Transmission Date: 20090719
  Serious: Yes (Other)
  Sender: FDA-Public Use
  Company Number: US-PFIZER INC-2009185771

PATIENT
  Sex: Male

DRUGS (2)
  1. LYRICA [Suspect]
  2. ALCOHOL [Suspect]

REACTIONS (3)
  - ANXIETY [None]
  - CONVULSION [None]
  - DRUG INTERACTION [None]
